FAERS Safety Report 7866884-X (Version None)
Quarter: 2011Q4

REPORT INFORMATION
  Report Type: 
  Country: None (occurrence: None)
  Receive Date: 20111028
  Receipt Date: 20111018
  Transmission Date: 20120403
  Serious: Yes (Hospitalization)
  Sender: FDA-Public Use
  Company Number: US-BAYER-2011-102858

PATIENT
  Sex: Female
  Weight: 81.9 kg

DRUGS (3)
  1. FLUOXETINE HCL [Concomitant]
     Dosage: 20 MG, QD
     Route: 048
  2. SYNTHROID [Concomitant]
     Dosage: 100 MCG/24HR, UNK
     Route: 048
  3. YASMIN [Suspect]
     Dosage: UNK
     Dates: start: 20050101, end: 20090901

REACTIONS (3)
  - DEEP VEIN THROMBOSIS [None]
  - OEDEMA PERIPHERAL [None]
  - PAIN IN EXTREMITY [None]
